FAERS Safety Report 6914505-2 (Version None)
Quarter: 2010Q3

REPORT INFORMATION
  Report Type: 
  Country: None (occurrence: None)
  Receive Date: 20100809
  Receipt Date: 20100730
  Transmission Date: 20110219
  Serious: Yes (Hospitalization)
  Sender: FDA-Public Use
  Company Number: US-ASTRAZENECA-2010SE14806

PATIENT
  Age: 61 Year
  Sex: Female

DRUGS (13)
  1. NEXIUM [Suspect]
     Route: 048
  2. COZAAR [Concomitant]
  3. CARDIA [Concomitant]
  4. DILTIAZEM [Concomitant]
  5. ALLEGRA [Concomitant]
     Route: 048
  6. ASPIRIN [Concomitant]
  7. FISH OIL [Concomitant]
  8. NORVASC [Concomitant]
  9. MULTI-VITAMINS [Concomitant]
  10. OMEGA 3 FATTY ACIDS [Concomitant]
  11. METAMUCIL-2 [Concomitant]
     Dosage: ONE TSP DAILY
  12. LOSARTAN POSTASSIUM [Concomitant]
  13. PROTONIX [Concomitant]

REACTIONS (4)
  - ATRIOVENTRICULAR BLOCK SECOND DEGREE [None]
  - COUGH [None]
  - EXTRASYSTOLES [None]
  - PRESYNCOPE [None]
